FAERS Safety Report 13056466 (Version 3)
Quarter: 2017Q1

REPORT INFORMATION
  Report Type: Report from Study
  Country: US (occurrence: US)
  Receive Date: 20161222
  Receipt Date: 20170309
  Transmission Date: 20170428
  Serious: Yes (Hospitalization)
  Sender: FDA-Public Use
  Company Number: US-PFIZER INC-2016583013

PATIENT
  Age: 74 Year
  Sex: Male
  Weight: 60.5 kg

DRUGS (3)
  1. PF-04518600 [Suspect]
     Active Substance: INVESTIGATIONAL PRODUCT
     Indication: TONGUE NEOPLASM MALIGNANT STAGE UNSPECIFIED
     Dosage: 10 MG/KG (TOTAL: 602MG), DAY 1 OF EACH 2 WEEK CYCLE
     Route: 042
     Dates: start: 20161208
  2. MORPHINE SULFATE. [Suspect]
     Active Substance: MORPHINE SULFATE
     Indication: PAIN
     Dosage: 10 MG, AS NEEDED
     Route: 048
     Dates: start: 20161205
  3. DOCUSATE [Concomitant]
     Active Substance: DOCUSATE
     Indication: CONSTIPATION
     Dosage: 100 MG, BID
     Route: 048
     Dates: start: 20160404

REACTIONS (3)
  - Mental status changes [Recovered/Resolved]
  - Fall [Recovered/Resolved]
  - Hip fracture [Recovered/Resolved]

NARRATIVE: CASE EVENT DATE: 20161212
